FAERS Safety Report 15473504 (Version 4)
Quarter: 2019Q2

REPORT INFORMATION
  Report Type: Spontaneous
  Country: US (occurrence: US)
  Receive Date: 20181008
  Receipt Date: 20190419
  Transmission Date: 20190711
  Serious: No
  Sender: FDA-Public Use
  Company Number: US-PFIZER INC-2018399773

PATIENT
  Age: 61 Year
  Sex: Male

DRUGS (1)
  1. XELJANZ XR [Suspect]
     Active Substance: TOFACITINIB CITRATE
     Dosage: 11 MG, UNK

REACTIONS (6)
  - Pain [Not Recovered/Not Resolved]
  - Grip strength decreased [Unknown]
  - Joint swelling [Unknown]
  - Chromaturia [Unknown]
  - Malaise [Unknown]
  - Pain in extremity [Unknown]
